FAERS Safety Report 18023123 (Version 2)
Quarter: 2020Q3

REPORT INFORMATION
  Report Type: Spontaneous
  Country: IT (occurrence: IT)
  Receive Date: 20200714
  Receipt Date: 20200806
  Transmission Date: 20201103
  Serious: Yes (Hospitalization)
  Sender: FDA-Public Use
  Company Number: IT-MYLANLABS-2020M1062643

PATIENT
  Age: 28 Year
  Sex: Female

DRUGS (7)
  1. DECAPEPTYL (ACETATE) [Suspect]
     Active Substance: TRIPTORELIN ACETATE
     Indication: CONTROLLED OVARIAN STIMULATION
     Dosage: 0.2 MILLIGRAM
     Route: 065
  2. DECAPEPTYL (ACETATE) [Suspect]
     Active Substance: TRIPTORELIN ACETATE
     Dosage: UNK
  3. LETROZOLE. [Suspect]
     Active Substance: LETROZOLE
     Indication: CONTROLLED OVARIAN STIMULATION
     Dosage: 5 MILLIGRAM
  4. CLEXANE [Suspect]
     Active Substance: ENOXAPARIN SODIUM
     Indication: HAEMORRHAGE PROPHYLAXIS
     Dosage: 4000 IU DAILY
  5. ORGALUTRAN [Suspect]
     Active Substance: GANIRELIX ACETATE
     Indication: CONTROLLED OVARIAN STIMULATION
     Dosage: UNK, QD  (1 DF)
  6. DECAPEPTYL (ACETATE) [Suspect]
     Active Substance: TRIPTORELIN ACETATE
     Indication: PROPHYLACTIC CHEMOTHERAPY
     Dosage: 375 MILLIGRAM PER MILLILITRE
     Route: 065
  7. OVALEAP [Suspect]
     Active Substance: FOLLITROPIN
     Indication: CONTROLLED OVARIAN STIMULATION
     Dosage: 150IU, DAILY

REACTIONS (2)
  - Off label use [Unknown]
  - Ovarian hyperstimulation syndrome [Recovered/Resolved]
